FAERS Safety Report 18384357 (Version 1)
Quarter: 2020Q4

REPORT INFORMATION
  Report Type: Report from Study
  Country: US (occurrence: US)
  Receive Date: 20201014
  Receipt Date: 20201014
  Transmission Date: 20210114
  Serious: Yes (Hospitalization, Other)
  Sender: FDA-Public Use
  Company Number: US-TEVA-2019-US-996356

PATIENT
  Age: 60 Year
  Sex: Female

DRUGS (3)
  1. COPAXONE [Suspect]
     Active Substance: GLATIRAMER ACETATE
     Route: 058
  2. COPAXONE [Suspect]
     Active Substance: GLATIRAMER ACETATE
     Indication: MULTIPLE SCLEROSIS
     Route: 058
     Dates: start: 20140418
  3. GENERIC GLATIRAMER ACETATE [Suspect]
     Active Substance: GLATIRAMER ACETATE
     Route: 065

REACTIONS (27)
  - Drug intolerance [Unknown]
  - Pneumonia [Unknown]
  - Parkinson^s disease [Unknown]
  - Multiple sclerosis [Unknown]
  - Multiple sclerosis relapse [Unknown]
  - Feeling abnormal [Recovering/Resolving]
  - Tremor [Recovering/Resolving]
  - Nausea [Unknown]
  - Myocardial infarction [Unknown]
  - Vision blurred [Recovering/Resolving]
  - Paraesthesia [Recovering/Resolving]
  - Limb discomfort [Recovered/Resolved]
  - Memory impairment [Unknown]
  - Device malfunction [Unknown]
  - Chest discomfort [Unknown]
  - Muscle tightness [Unknown]
  - Cardiac failure congestive [Unknown]
  - Fall [Unknown]
  - Dizziness [Unknown]
  - Muscular weakness [Recovered/Resolved]
  - Atrioventricular block complete [Unknown]
  - Hyperhidrosis [Unknown]
  - Chills [Unknown]
  - Cough [Unknown]
  - Eating disorder [Recovering/Resolving]
  - Heart rate increased [Unknown]
  - Headache [Unknown]

NARRATIVE: CASE EVENT DATE: 2017
